FAERS Safety Report 26177960 (Version 1)
Quarter: 2025Q4

REPORT INFORMATION
  Report Type: Spontaneous
  Country: GB (occurrence: GB)
  Receive Date: 20251219
  Receipt Date: 20251219
  Transmission Date: 20260118
  Serious: Yes (Other)
  Sender: EXELIXIS
  Company Number: GB-IPSEN Group, Research and Development-2025-30845

PATIENT
  Age: 15 Year
  Sex: Female
  Weight: 74 kg

DRUGS (3)
  1. CABOMETYX [Suspect]
     Active Substance: CABOZANTINIB S-MALATE
     Indication: Osteosarcoma metastatic
     Dosage: ODCYCLE #1
     Route: 048
     Dates: start: 20251019
  2. CABOMETYX [Suspect]
     Active Substance: CABOZANTINIB S-MALATE
     Indication: Off label use
     Dosage: ODCYCLE #2
     Route: 048
     Dates: start: 20251128
  3. ESTRADIOL\NORETHINDRONE ACETATE [Concomitant]
     Active Substance: ESTRADIOL\NORETHINDRONE ACETATE
     Indication: Premature menopause
     Dosage: UNK
     Route: 062
     Dates: start: 202406

REACTIONS (5)
  - Hepatotoxicity [Recovering/Resolving]
  - Salivary hypersecretion [Recovering/Resolving]
  - Decreased appetite [Recovering/Resolving]
  - Dry skin [Recovering/Resolving]
  - Off label use [Unknown]

NARRATIVE: CASE EVENT DATE: 20251019
